FAERS Safety Report 26139615 (Version 1)
Quarter: 2025Q4

REPORT INFORMATION
  Report Type: Spontaneous
  Country: US (occurrence: None)
  Receive Date: 20251209
  Receipt Date: 20251209
  Transmission Date: 20260118
  Serious: Yes (Other)
  Sender: FDA-CTU
  Company Number: None

PATIENT
  Age: 79 Year
  Sex: Female

DRUGS (1)
  1. PROLIA [Suspect]
     Active Substance: DENOSUMAB
     Dosage: 60MG : EVERY 6 MONTHS

REACTIONS (14)
  - Feeling abnormal [None]
  - Neck pain [None]
  - Pain [None]
  - Fatigue [None]
  - Musculoskeletal stiffness [None]
  - Feeling hot [None]
  - Hyperhidrosis [None]
  - Burning sensation [None]
  - Nervousness [None]
  - Anxiety [None]
  - Dyspepsia [None]
  - Tremor [None]
  - Dizziness [None]
  - Constipation [None]
